FAERS Safety Report 23019561 (Version 3)
Quarter: 2023Q4

REPORT INFORMATION
  Report Type: Report from Study
  Country: CO (occurrence: CO)
  Receive Date: 20231003
  Receipt Date: 20231103
  Transmission Date: 20240110
  Serious: Yes (Other)
  Sender: FDA-Public Use
  Company Number: CO-ABBVIE-5389670

PATIENT
  Sex: Male
  Weight: 70 kg

DRUGS (3)
  1. SKYRIZI [Suspect]
     Active Substance: RISANKIZUMAB-RZAA
     Indication: Psoriasis
     Dosage: FORM STRENGTH: 75 MILLIGRAM
     Route: 058
     Dates: start: 20201230, end: 20230505
  2. SKYRIZI [Suspect]
     Active Substance: RISANKIZUMAB-RZAA
     Dosage: FORM STRENGTH: 75 MILLIGRAM
     Route: 058
     Dates: start: 20231013
  3. METHOTREXATE [Concomitant]
     Active Substance: METHOTREXATE
     Indication: Product used for unknown indication
     Route: 065

REACTIONS (7)
  - Insomnia [Recovered/Resolved]
  - Dyspnoea [Recovered/Resolved]
  - Nasal turbinate abnormality [Recovered/Resolved]
  - Blister [Recovering/Resolving]
  - Respiratory disorder [Recovered/Resolved]
  - Skin disorder [Recovering/Resolving]
  - Agitation [Unknown]

NARRATIVE: CASE EVENT DATE: 20230101
